FAERS Safety Report 21862458 (Version 2)
Quarter: 2023Q1

REPORT INFORMATION
  Report Type: Spontaneous
  Country: IT (occurrence: IT)
  Receive Date: 20230114
  Receipt Date: 20230202
  Transmission Date: 20230418
  Serious: Yes (Other)
  Sender: FDA-Public Use
  Company Number: IT-002147023-NVSC2023IT007206

PATIENT
  Age: 67 Year
  Sex: Female
  Weight: 60 kg

DRUGS (4)
  1. BEOVU [Suspect]
     Active Substance: BROLUCIZUMAB-DBLL
     Indication: Retinal neovascularisation
     Dosage: UNK
     Route: 031
     Dates: start: 202206
  2. BEOVU [Suspect]
     Active Substance: BROLUCIZUMAB-DBLL
     Dosage: UNK (RIGHT EYE)
     Route: 031
     Dates: start: 20220714
  3. BEOVU [Suspect]
     Active Substance: BROLUCIZUMAB-DBLL
     Dosage: UNK (RIGHT EYE)
     Route: 031
     Dates: start: 20220913
  4. BEOVU [Suspect]
     Active Substance: BROLUCIZUMAB-DBLL
     Dosage: UNK (RIGHT EYE)
     Route: 031
     Dates: start: 20221213

REACTIONS (4)
  - Giant cell arteritis [Recovered/Resolved]
  - Vitritis [Recovered/Resolved]
  - Vitreous floaters [Recovered/Resolved]
  - Vision blurred [Recovered/Resolved]

NARRATIVE: CASE EVENT DATE: 20221223
